FAERS Safety Report 12400967 (Version 2)
Quarter: 2016Q2

REPORT INFORMATION
  Report Type: Spontaneous
  Country: US (occurrence: US)
  Receive Date: 20160525
  Receipt Date: 20160525
  Transmission Date: 20160815
  Serious: No
  Sender: FDA-Public Use
  Company Number: US-SA-2015SA115130

PATIENT
  Age: 59 Year
  Sex: Male

DRUGS (16)
  1. SOLOSTAR [Concomitant]
     Active Substance: DEVICE
     Indication: TYPE 2 DIABETES MELLITUS
  2. ATORVASTATIN [Concomitant]
     Active Substance: ATORVASTATIN
  3. AMLODIPINE BESILATE [Concomitant]
     Active Substance: AMLODIPINE BESYLATE
  4. ARMOUR THYROID [Concomitant]
     Active Substance: THYROID, PORCINE
  5. ELIQUIS [Concomitant]
     Active Substance: APIXABAN
  6. LANTUS SOLOSTAR [Suspect]
     Active Substance: INSULIN GLARGINE
     Indication: TYPE 2 DIABETES MELLITUS
     Dosage: DOSE:65 U AM AND 65 U PM DOSE:45 UNIT(S)
     Route: 065
  7. GLIPIZIDE. [Concomitant]
     Active Substance: GLIPIZIDE
  8. PROPAFENONE. [Concomitant]
     Active Substance: PROPAFENONE
  9. OMEGA-3-ACID ETHYL ESTERS. [Concomitant]
     Active Substance: OMEGA-3-ACID ETHYL ESTERS
  10. FENOFIBRATE. [Concomitant]
     Active Substance: FENOFIBRATE
  11. LISINOPRIL. [Concomitant]
     Active Substance: LISINOPRIL
  12. DIAZEPAM. [Concomitant]
     Active Substance: DIAZEPAM
  13. TOPROL XL [Concomitant]
     Active Substance: METOPROLOL SUCCINATE
  14. ZOLPIDEM TARTRATE. [Concomitant]
     Active Substance: ZOLPIDEM TARTRATE
  15. TORSEMIDE. [Concomitant]
     Active Substance: TORSEMIDE
  16. LANTUS SOLOSTAR [Suspect]
     Active Substance: INSULIN GLARGINE
     Indication: TYPE 2 DIABETES MELLITUS
     Dosage: DOSE:65 U AM AND 65 U PM DOSE:65 UNIT(S)
     Route: 065
     Dates: start: 2010

REACTIONS (3)
  - Drug administration error [Unknown]
  - Visual acuity reduced [Unknown]
  - Wrong technique in product usage process [Unknown]
